FAERS Safety Report 18297235 (Version 2)
Quarter: 2021Q3

REPORT INFORMATION
  Report Type: Spontaneous
  Country: US (occurrence: US)
  Receive Date: 20200923
  Receipt Date: 20210825
  Transmission Date: 20211014
  Serious: Yes (Other)
  Sender: FDA-Public Use
  Company Number: US-SA-2020SA252975

PATIENT
  Sex: Male

DRUGS (2)
  1. RANITIDINE HYDROCHLORIDE. [Suspect]
     Active Substance: RANITIDINE HYDROCHLORIDE
     Dosage: UNK
     Dates: start: 199401, end: 199501
  2. ZANTAC [Suspect]
     Active Substance: RANITIDINE HYDROCHLORIDE
     Dosage: UNK
     Dates: start: 199401, end: 199501

REACTIONS (5)
  - Anxiety [Unknown]
  - Anhedonia [Unknown]
  - Prostate cancer [Unknown]
  - Breast cancer [Unknown]
  - Pain [Unknown]

NARRATIVE: CASE EVENT DATE: 20180101
